FAERS Safety Report 16729857 (Version 3)
Quarter: 2023Q1

REPORT INFORMATION
  Report Type: Spontaneous
  Country: US (occurrence: US)
  Receive Date: 20190822
  Receipt Date: 20230314
  Transmission Date: 20230417
  Serious: Yes (Hospitalization, Other)
  Sender: FDA-Public Use
  Company Number: US-PFIZER INC-2019359640

PATIENT
  Age: 56 Year
  Sex: Female

DRUGS (2)
  1. XELJANZ [Suspect]
     Active Substance: TOFACITINIB CITRATE
     Dosage: 10 MG
     Dates: start: 20190301, end: 20210508
  2. XELJANZ [Suspect]
     Active Substance: TOFACITINIB CITRATE
     Dosage: 10 MG

REACTIONS (10)
  - Colitis ulcerative [Unknown]
  - Pulmonary embolism [Unknown]
  - Glaucoma [Unknown]
  - Deep vein thrombosis [Unknown]
  - Liver function test increased [Unknown]
  - Herpes zoster [Unknown]
  - Poor quality sleep [Unknown]
  - Dry skin [Unknown]
  - Nasal congestion [Recovering/Resolving]
  - Haematuria [Unknown]
